FAERS Safety Report 15545425 (Version 4)
Quarter: 2020Q3

REPORT INFORMATION
  Report Type: Spontaneous
  Country: FR (occurrence: FR)
  Receive Date: 20181024
  Receipt Date: 20200828
  Transmission Date: 20201102
  Serious: Yes (Death, Hospitalization, Other)
  Sender: FDA-Public Use
  Company Number: FR-AUROBINDO-AUR-APL-2018-001012

PATIENT
  Age: 41 Year
  Sex: Male
  Weight: 55 kg

DRUGS (31)
  1. SUTENT [Suspect]
     Active Substance: SUNITINIB MALATE
     Indication: PANCREATIC NEUROENDOCRINE TUMOUR
     Dosage: 12.5 MILLIGRAM, ONCE A DAY
     Route: 065
     Dates: start: 20150910, end: 20150918
  2. FLUOROURACIL. [Suspect]
     Active Substance: FLUOROURACIL
     Indication: PANCREATIC NEUROENDOCRINE TUMOUR
     Dosage: 400 MILLIGRAM/SQ. METER, IN TOTAL, SINGLE
     Route: 065
     Dates: start: 20160914, end: 20160914
  3. FLUOROURACIL. [Suspect]
     Active Substance: FLUOROURACIL
     Dosage: 1400 MILLIGRAM/SQ. METER, TOTAL, SINGLE
     Route: 065
     Dates: start: 20160914, end: 20160914
  4. GEMCITABINE. [Suspect]
     Active Substance: GEMCITABINE
     Indication: PANCREATIC NEUROENDOCRINE TUMOUR
     Dosage: 500 MILLIGRAM/SQ. METER, CYCLICAL, EVERY 14 DAYS
     Route: 065
     Dates: start: 20151105, end: 20160218
  5. DEBRIDAT [Concomitant]
     Active Substance: TRIMEBUTINE MALEATE
     Indication: ABDOMINAL DISTENSION
     Dosage: UNK
     Route: 048
     Dates: start: 20160902
  6. SOLU?MEDROL [Concomitant]
     Active Substance: METHYLPREDNISOLONE SODIUM SUCCINATE
     Indication: ABDOMINAL PAIN
     Dosage: UNK
     Route: 048
     Dates: start: 20160920, end: 20160920
  7. OXALIPLATIN. [Suspect]
     Active Substance: OXALIPLATIN
     Indication: PANCREATIC NEUROENDOCRINE TUMOUR
     Dosage: 75 MG/M2 EVERY14 DAYS ; CYCLICAL
     Route: 065
     Dates: start: 20151105, end: 20160218
  8. SUTENT [Suspect]
     Active Substance: SUNITINIB MALATE
     Dosage: 37.5 MILLIGRAM, ONCE A DAY
     Route: 065
     Dates: start: 20150827, end: 20150831
  9. DUROGESIC [Concomitant]
     Active Substance: FENTANYL
     Indication: ABDOMINAL PAIN
     Dosage: UNK
     Route: 003
     Dates: start: 201510
  10. OXALIPLATIN. [Suspect]
     Active Substance: OXALIPLATIN
     Dosage: 75 MILLIGRAM/SQ. METER, CYCLICAL, EVERY 14 DAYS
     Route: 065
     Dates: start: 20160616
  11. INIPOMP [Concomitant]
     Active Substance: PANTOPRAZOLE SODIUM
     Indication: REFLUX GASTRITIS
     Dosage: UNK
     Route: 048
     Dates: start: 20160616
  12. INNOHEP [Concomitant]
     Active Substance: TINZAPARIN SODIUM
     Indication: PROPHYLAXIS
     Dosage: UNK
     Route: 058
     Dates: start: 20160915
  13. SOLU?MEDROL [Concomitant]
     Active Substance: METHYLPREDNISOLONE SODIUM SUCCINATE
     Dosage: UNK
     Route: 048
     Dates: start: 20161004, end: 20161005
  14. MORPHIN [Concomitant]
     Active Substance: MORPHINE
     Indication: ABDOMINAL PAIN
     Dosage: UNK
     Route: 042
     Dates: start: 20161004, end: 20161007
  15. GEMCITABINE. [Suspect]
     Active Substance: GEMCITABINE
     Dosage: 500 MILLIGRAM/SQ. METER, CYCLICAL, EVERY 14 DAYS
     Route: 065
     Dates: start: 20160616, end: 20160729
  16. OXALIPLATIN. [Suspect]
     Active Substance: OXALIPLATIN
     Dosage: 75 MILLIGRAM/SQ. METER, CYCLICAL, EVERY14 DAYS
     Route: 065
     Dates: start: 20151105
  17. SUTENT [Suspect]
     Active Substance: SUNITINIB MALATE
     Dosage: 25 MILLIGRAM, ONCE A DAY, CONTINUOUS
     Route: 065
     Dates: start: 20150919, end: 20151023
  18. SOMATULINE [Suspect]
     Active Substance: LANREOTIDE ACETATE
     Indication: PANCREATIC NEUROENDOCRINE TUMOUR
     Dosage: 120 MILLIGRAM, CYCLICAL, EVERY 28 DAYS
     Route: 065
     Dates: start: 20160810, end: 20160907
  19. SOLUPRED [Concomitant]
     Indication: ABDOMINAL PAIN
     Dosage: UNK
     Route: 048
     Dates: start: 20160920
  20. DUROGESIC [Concomitant]
     Active Substance: FENTANYL
     Dosage: UNK
     Route: 003
     Dates: start: 20160922, end: 20161004
  21. GEMCITABINE. [Suspect]
     Active Substance: GEMCITABINE
     Dosage: 840 MILLIGRAM/SQ. METER, CYCLICAL, EVERY 14 DAYS
     Route: 065
     Dates: start: 20160616, end: 20160729
  22. IRINOTECAN [Suspect]
     Active Substance: IRINOTECAN
     Indication: PANCREATIC NEUROENDOCRINE TUMOUR
     Dosage: 180 MILLIGRAM/SQ. METER, IN TOTAL, SINGLE
     Route: 065
     Dates: start: 20160914
  23. TARDYFERON [Concomitant]
     Active Substance: FERROUS SULFATE
     Indication: IRON DEFICIENCY
     Dosage: UNK
     Route: 048
     Dates: start: 20160630, end: 20160729
  24. OXYNORM [Concomitant]
     Active Substance: OXYCODONE HYDROCHLORIDE
     Indication: ABDOMINAL PAIN
     Dosage: UNK
     Route: 048
     Dates: start: 201510
  25. OXALIPLATIN. [Suspect]
     Active Substance: OXALIPLATIN
     Dosage: 75 MG/M2, Q2W
     Route: 065
     Dates: start: 20160729
  26. OXALIPLATIN. [Suspect]
     Active Substance: OXALIPLATIN
     Dosage: 126 MILLIGRAM/SQ. METER, CYCLICAL, EVERY 14 DAYS
     Route: 065
     Dates: start: 20160616, end: 20160729
  27. SOMATULINE [Suspect]
     Active Substance: LANREOTIDE ACETATE
     Dosage: 120 MG, CYCLIC, EVERY 28 DAYS
     Route: 065
     Dates: start: 20160907
  28. ELVORINE [Suspect]
     Active Substance: LEUCOVORIN CALCIUM
     Indication: PANCREATIC NEUROENDOCRINE TUMOUR
     Dosage: 200 MILLIGRAM/SQ. METER
     Route: 065
     Dates: start: 20160914
  29. FLUOROURACIL. [Suspect]
     Active Substance: FLUOROURACIL
     Dosage: 2400 MILLIGRAM/SQ. METER, IN TOTAL, SINGLE
     Route: 065
     Dates: start: 20160914, end: 20160914
  30. METEOXANE [Concomitant]
     Active Substance: AMOBARBITAL\BELLADONNA LEAF\DIMETHICONE\ERGOTAMINE TARTRATE
     Indication: ABDOMINAL DISTENSION
     Dosage: UNK
     Route: 048
     Dates: start: 20160729
  31. OXYNORM [Concomitant]
     Active Substance: OXYCODONE HYDROCHLORIDE
     Dosage: UNK
     Route: 048
     Dates: start: 20160916, end: 20161004

REACTIONS (14)
  - Tumour necrosis [Recovered/Resolved]
  - Asthenia [Not Recovered/Not Resolved]
  - Hypoaesthesia [Not Recovered/Not Resolved]
  - Psychomotor retardation [Recovered/Resolved]
  - Hepatic pain [Recovered/Resolved]
  - Dyspnoea [Not Recovered/Not Resolved]
  - Abdominal pain [Not Recovered/Not Resolved]
  - Neutropenia [Unknown]
  - Pain [Recovered/Resolved]
  - Decreased appetite [Not Recovered/Not Resolved]
  - Neoplasm progression [Fatal]
  - Dysaesthesia [Recovered/Resolved]
  - Psychomotor skills impaired [Not Recovered/Not Resolved]
  - General physical health deterioration [Recovered/Resolved]

NARRATIVE: CASE EVENT DATE: 20150829
